FAERS Safety Report 6972359-2 (Version None)
Quarter: 2010Q3

REPORT INFORMATION
  Report Type: 
  Country: None (occurrence: None)
  Receive Date: 20100909
  Receipt Date: 20100901
  Transmission Date: 20110219
  Serious: Yes (Other)
  Sender: FDA-Public Use
  Company Number: US-JNJFOC-20100901998

PATIENT
  Sex: Female
  Weight: 59.88 kg

DRUGS (11)
  1. FENTANYL CITRATE [Suspect]
     Indication: PAIN IN EXTREMITY
     Route: 062
  2. FENTANYL CITRATE [Suspect]
     Indication: BACK PAIN
     Route: 062
  3. FENTANYL CITRATE [Suspect]
     Route: 062
  4. FENTANYL CITRATE [Suspect]
     Route: 062
  5. EFFEXOR [Concomitant]
     Indication: DEPRESSION
     Route: 048
  6. REQUIP [Concomitant]
     Indication: RESTLESS LEGS SYNDROME
     Route: 048
  7. PRAVACHOL [Concomitant]
     Indication: BLOOD CHOLESTEROL ABNORMAL
     Route: 048
  8. LORCET-HD [Concomitant]
     Indication: BREAKTHROUGH PAIN
     Route: 048
  9. ACCUPRIL [Concomitant]
     Indication: HYPERTENSION
     Route: 048
  10. ATENOLOL [Concomitant]
     Indication: HYPERTENSION
     Route: 048
  11. HYDROCHLOROTHIAZIDE [Concomitant]
     Indication: HYPERTENSION
     Route: 048

REACTIONS (6)
  - BODY HEIGHT DECREASED [None]
  - DIABETES MELLITUS [None]
  - HYPERHIDROSIS [None]
  - LUNG NEOPLASM MALIGNANT [None]
  - PRODUCT ADHESION ISSUE [None]
  - URINARY INCONTINENCE [None]
